FAERS Safety Report 10650804 (Version 1)
Quarter: 2014Q4

REPORT INFORMATION
  Report Type: Spontaneous
  Country: FR (occurrence: FR)
  Receive Date: 20141215
  Receipt Date: 20141215
  Transmission Date: 20150529
  Serious: Yes (Congenital Anomaly)
  Sender: FDA-Public Use
  Company Number: PHHY2014FR162724

PATIENT
  Sex: Female

DRUGS (1)
  1. DEXAMETHASONE. [Suspect]
     Active Substance: DEXAMETHASONE
     Dosage: (MATERNAL DOSE: 20 UG/KG/DAY)
     Route: 064

REACTIONS (3)
  - Enlarged clitoris [Unknown]
  - Foetal exposure during pregnancy [Unknown]
  - Vulval disorder [Unknown]
